FAERS Safety Report 19269704 (Version 8)
Quarter: 2022Q1

REPORT INFORMATION
  Report Type: Other
  Country: GB (occurrence: GB)
  Receive Date: 20210518
  Receipt Date: 20220106
  Transmission Date: 20220423
  Serious: Yes (Death, Congenital Anomaly, Other)
  Sender: FDA-Public Use
  Company Number: GB-MACLEODS PHARMA UK LTD-MAC2021031122

PATIENT

DRUGS (9)
  1. TENOFOVIR [Suspect]
     Active Substance: TENOFOVIR
     Indication: Product used for unknown indication
     Dosage: 1 DOSAGE FORM, QD, 1 COURSE, DURING SECOND TRIMESTER OF PREGNANCY. START DATE 01-AUG-2020
     Route: 064
  2. ABACAVIR\LAMIVUDINE [Suspect]
     Active Substance: ABACAVIR\LAMIVUDINE
     Indication: Product used for unknown indication
     Dosage: 1 DOSAGE FORM, QD, 1 COURSE, DURING FIRST TRIMESTER OF PREGNANCY, MATERNAL DOSE
     Route: 064
     Dates: start: 20200601, end: 20200801
  3. TRUVADA [Suspect]
     Active Substance: EMTRICITABINE\TENOFOVIR DISOPROXIL FUMARATE
     Indication: Product used for unknown indication
     Dosage: 1 DOSAGE FORM, QD, 1 COURSE, DURING SECOND TRIMESTER OF PREGNANCY, MATERNAL DOSE, START DATE: 01-AUG
     Route: 064
     Dates: start: 20200601
  4. TRUVADA [Suspect]
     Active Substance: EMTRICITABINE\TENOFOVIR DISOPROXIL FUMARATE
     Dosage: 1 DOSAGE FORM, QD, 1 COURSE, DURING SECOND TRIMESTER OF PREGNANCY, MATERNAL DOSE, START DATE: 01-AUG
     Route: 064
     Dates: start: 20200801
  5. DESCOVY [Suspect]
     Active Substance: EMTRICITABINE\TENOFOVIR ALAFENAMIDE FUMARATE
     Indication: Product used for unknown indication
     Dosage: 1 DOSAGE FORM, QD, 1 COURSE, PRIOR TO CONCEPTION, STOP DATE: 01-JUN-2020, MATERNAL DOSE
     Route: 064
     Dates: start: 20200601
  6. REYATAZ [Suspect]
     Active Substance: ATAZANAVIR SULFATE
     Indication: Product used for unknown indication
     Dosage: 1 DOSAGE FORM, QD, 1 COURSE, DURING FIRST TRIMESTER OF PREGNANCY,  START DATE: 01-JUN-2020, STOP DAT
     Route: 064
     Dates: start: 20200601, end: 20200801
  7. ISENTRESS [Suspect]
     Active Substance: RALTEGRAVIR POTASSIUM
     Indication: Product used for unknown indication
     Dosage: 1 DOSAGE FORM, QD, 1 COURSE, DURING SECOND TRIMESTER OF PREGNANCY, START DATE: 01-AUG-2020
     Route: 064
     Dates: start: 20200801
  8. RITONAVIR [Suspect]
     Active Substance: RITONAVIR
     Indication: Product used for unknown indication
     Dosage: 1 DOSAGE FORM, QD, 1 COURSE, DURING FIRST TRIMESTER OF PREGNANCY, START DATE: 01-JUN-2020, STOP DATE
     Route: 064
     Dates: start: 20200601, end: 20200801
  9. EMTRICITABINE [Suspect]
     Active Substance: EMTRICITABINE
     Indication: Product used for unknown indication
     Dosage: 1 DOSAGE FORM, QD, 1 COURSE, DURING SECOND TRIMESTER OF PREGNANCY, START DATE: 01-AUG-2020
     Route: 064

REACTIONS (5)
  - Foetal death [Fatal]
  - Spina bifida [Not Recovered/Not Resolved]
  - Congenital hydrocephalus [Unknown]
  - Premature baby [Unknown]
  - Foetal exposure during pregnancy [Unknown]

NARRATIVE: CASE EVENT DATE: 20200101
